FAERS Safety Report 10014232 (Version 1)
Quarter: 2014Q1

REPORT INFORMATION
  Report Type: Spontaneous
  Country: IT (occurrence: IT)
  Receive Date: 20140317
  Receipt Date: 20140317
  Transmission Date: 20141002
  Serious: Yes (Other)
  Sender: FDA-Public Use
  Company Number: IT-JNJFOC-20140305957

PATIENT
  Age: 43 Year
  Sex: Female
  Weight: 65 kg

DRUGS (2)
  1. TOPAMAX [Suspect]
     Indication: PRODUCT USED FOR UNKNOWN INDICATION
     Route: 048
     Dates: start: 20140309, end: 20140309
  2. EN [Suspect]
     Indication: PRODUCT USED FOR UNKNOWN INDICATION
     Route: 048
     Dates: start: 20140309, end: 20140309

REACTIONS (2)
  - Self injurious behaviour [Unknown]
  - Intentional overdose [Unknown]
